FAERS Safety Report 7266717-9 (Version None)
Quarter: 2011Q1

REPORT INFORMATION
  Report Type: 
  Country: None (occurrence: None)
  Receive Date: 20110201
  Receipt Date: 20110119
  Transmission Date: 20110831
  Serious: No
  Sender: FDA-Public Use
  Company Number: US-BIOGENIDEC-2010BI040949

PATIENT
  Age: 45 Year
  Sex: Female

DRUGS (3)
  1. AMPYRA [Concomitant]
     Dates: start: 20100501
  2. AMPYRA [Concomitant]
     Dates: start: 20110118
  3. TYSABRI [Suspect]
     Indication: MULTIPLE SCLEROSIS
     Route: 042
     Dates: start: 20090529

REACTIONS (2)
  - RASH PAPULAR [None]
  - RASH PRURITIC [None]
